FAERS Safety Report 9640758 (Version 1)
Quarter: 2013Q4

REPORT INFORMATION
  Report Type: Report from Study
  Country: US (occurrence: US)
  Receive Date: 20131023
  Receipt Date: 20131023
  Transmission Date: 20140711
  Serious: Yes (Hospitalization, Other)
  Sender: FDA-Public Use
  Company Number: US-ABBVIE-13P-163-1066889-00

PATIENT
  Sex: Female
  Weight: 68.1 kg

DRUGS (2)
  1. LUPRON DEPOT [Suspect]
     Indication: ENDOMETRIOSIS
     Route: 030
     Dates: end: 2006
  2. PHENTERMINE [Concomitant]
     Indication: WEIGHT DECREASED
     Dosage: TAKING ON AN INCONSISTENT BASIS POST LUPRON

REACTIONS (8)
  - Endometriosis [Recovered/Resolved]
  - Endometriosis [Unknown]
  - Feeling abnormal [Unknown]
  - Mood altered [Unknown]
  - Irritability [Unknown]
  - Feeling abnormal [Unknown]
  - Hot flush [Unknown]
  - Weight decreased [Unknown]
